FAERS Safety Report 11569342 (Version 2)
Quarter: 2015Q4

REPORT INFORMATION
  Report Type: Spontaneous
  Country: DE (occurrence: DE)
  Receive Date: 20150929
  Receipt Date: 20151026
  Transmission Date: 20160304
  Serious: Yes (Hospitalization)
  Sender: FDA-Public Use
  Company Number: DE-JNJFOC-20150918640

PATIENT
  Age: 74 Year
  Sex: Male

DRUGS (6)
  1. RAMIPRIL. [Concomitant]
     Active Substance: RAMIPRIL
  2. BISOPROLOL [Concomitant]
     Active Substance: BISOPROLOL
  3. SPIRONOLAKTON [Concomitant]
     Active Substance: SPIRONOLACTONE
  4. MARCUMAR [Concomitant]
     Active Substance: PHENPROCOUMON
  5. RANEXA [Concomitant]
     Active Substance: RANOLAZINE
  6. IMBRUVICA [Suspect]
     Active Substance: IBRUTINIB
     Indication: MANTLE CELL LYMPHOMA
     Route: 048
     Dates: start: 201404

REACTIONS (1)
  - Lymphoedema [Recovering/Resolving]

NARRATIVE: CASE EVENT DATE: 201508
